FAERS Safety Report 12192989 (Version 2)
Quarter: 2016Q1

REPORT INFORMATION
  Report Type: Report from Study
  Country: CL (occurrence: CL)
  Receive Date: 20160318
  Receipt Date: 20160329
  Transmission Date: 20160526
  Serious: Yes (Death, Hospitalization)
  Sender: FDA-Public Use
  Company Number: PHHY2016CL036648

PATIENT
  Age: 9 Year
  Sex: Female
  Weight: 35 kg

DRUGS (1)
  1. GLIVEC [Suspect]
     Active Substance: IMATINIB MESYLATE
     Indication: ACUTE LYMPHOCYTIC LEUKAEMIA
     Dosage: 400 MG, UNK
     Route: 065

REACTIONS (5)
  - Acute kidney injury [Unknown]
  - Klebsiella infection [Fatal]
  - Septic shock [Unknown]
  - Febrile neutropenia [Unknown]
  - Pyrexia [Unknown]

NARRATIVE: CASE EVENT DATE: 20160225
